FAERS Safety Report 5595217-7 (Version None)
Quarter: 2008Q1

REPORT INFORMATION
  Report Type: 
  Country: None (occurrence: None)
  Receive Date: 20080117
  Receipt Date: 20071219
  Transmission Date: 20080703
  Serious: Yes (Death)
  Sender: FDA-Public Use
  Company Number: BR-PFIZER INC-2008004006

PATIENT
  Sex: Female

DRUGS (2)
  1. SILDENAFIL (PAH) [Suspect]
     Indication: PULMONARY HYPERTENSION
     Route: 048
  2. BOSENTAN [Concomitant]
     Indication: PULMONARY HYPERTENSION

REACTIONS (1)
  - PULMONARY HYPERTENSION [None]
